FAERS Safety Report 15216243 (Version 1)
Quarter: 2018Q3

REPORT INFORMATION
  Report Type: Spontaneous
  Country: US (occurrence: US)
  Receive Date: 20180703
  Receipt Date: 20180703
  Transmission Date: 20181010
  Serious: Yes (Other)
  Sender: FDA-Public Use
  Company Number: None

PATIENT
  Age: 59 Year
  Sex: Female
  Weight: 85.05 kg

DRUGS (13)
  1. GABAPENTIN. [Concomitant]
     Active Substance: GABAPENTIN
  2. CUMIN. [Concomitant]
     Active Substance: CUMIN
  3. PROAIR INHALER [Concomitant]
     Active Substance: ALBUTEROL SULFATE
  4. CRANBERRY. [Concomitant]
     Active Substance: CRANBERRY
  5. D?MANNOSE [Concomitant]
  6. ADVAIR DISKUS [Suspect]
     Active Substance: FLUTICASONE PROPIONATE\SALMETEROL XINAFOATE
     Indication: ASTHMA
     Dosage: ?          OTHER STRENGTH:MCG;QUANTITY:1 PUFF(S);?
     Route: 048
     Dates: start: 20180107, end: 20180630
  7. CALCIUM MAGNESIUM AND ZINC [Concomitant]
  8. TRAZODONE [Concomitant]
     Active Substance: TRAZODONE HYDROCHLORIDE
  9. VENLAFAXINE [Concomitant]
     Active Substance: VENLAFAXINE HYDROCHLORIDE
  10. AMLODIPINE [Concomitant]
     Active Substance: AMLODIPINE BESYLATE
  11. TUMERIC [Concomitant]
     Active Substance: HERBALS\TURMERIC
  12. AMERICAN GINSENG [Concomitant]
  13. CHLORELLA [Concomitant]

REACTIONS (2)
  - Product substitution issue [None]
  - Condition aggravated [None]

NARRATIVE: CASE EVENT DATE: 20180515
